FAERS Safety Report 8846167 (Version 1)
Quarter: 2012Q4

REPORT INFORMATION
  Report Type: 
  Country: US (occurrence: US)
  Receive Date: 20121017
  Receipt Date: 20121017
  Transmission Date: 20130627
  Serious: Yes (Other)
  Sender: FDA-Public Use
  Company Number: US-PURDUE-USA-2012-0094439

PATIENT
  Age: 45 Year
  Sex: Female

DRUGS (3)
  1. OXYCONTIN (NDA 22-272) [Suspect]
     Indication: MUSCULOSKELETAL PAIN
     Dosage: 10 mg, five times daily
     Route: 048
     Dates: start: 20120803, end: 20120923
  2. OXYCONTIN (NDA 22-272) [Suspect]
     Indication: NECK PAIN
  3. VICODIN [Concomitant]
     Indication: BREAKTHROUGH PAIN
     Dosage: 10 mg, five times daily
     Route: 048

REACTIONS (4)
  - Drug dependence [Recovered/Resolved]
  - Faecaloma [Unknown]
  - Drug withdrawal syndrome [Recovered/Resolved]
  - Constipation [Recovered/Resolved]
